FAERS Safety Report 23183545 (Version 2)
Quarter: 2023Q4

REPORT INFORMATION
  Report Type: Spontaneous
  Country: US (occurrence: US)
  Receive Date: 20231114
  Receipt Date: 20231211
  Transmission Date: 20240109
  Serious: No
  Sender: FDA-Public Use
  Company Number: US-ARRAY-2019-06749

PATIENT
  Age: 71 Year
  Sex: Male

DRUGS (3)
  1. MEKTOVI [Suspect]
     Active Substance: BINIMETINIB
     Indication: Malignant melanoma
     Dosage: 30 MG, 2X/DAY
     Route: 048
     Dates: start: 20191016
  2. MEKTOVI [Suspect]
     Active Substance: BINIMETINIB
     Dosage: ORIGINAL DOSE
  3. BRAFTOVI [Suspect]
     Active Substance: ENCORAFENIB
     Indication: Malignant melanoma
     Dosage: 450 MG, 1X/DAY
     Route: 048
     Dates: start: 20191016

REACTIONS (2)
  - Infection [Recovered/Resolved]
  - Rash [Recovered/Resolved]
